FAERS Safety Report 5642996-6 (Version None)
Quarter: 2008Q1

REPORT INFORMATION
  Report Type: 
  Country: None (occurrence: None)
  Receive Date: 20080228
  Receipt Date: 20080225
  Transmission Date: 20080703
  Serious: Yes (Other)
  Sender: FDA-Public Use
  Company Number: B0509614A

PATIENT
  Age: 90 Year
  Sex: Female

DRUGS (1)
  1. VALTREX [Suspect]
     Indication: DRUG USE FOR UNKNOWN INDICATION
     Dosage: 2000MG PER DAY
     Route: 048
     Dates: start: 20080213, end: 20080215

REACTIONS (2)
  - HALLUCINATION [None]
  - INSOMNIA [None]
